FAERS Safety Report 21242026 (Version 4)
Quarter: 2022Q4

REPORT INFORMATION
  Report Type: Spontaneous
  Country: US (occurrence: US)
  Receive Date: 20220823
  Receipt Date: 20221111
  Transmission Date: 20230113
  Serious: No
  Sender: FDA-Public Use
  Company Number: US-PFIZER INC-2020192698

PATIENT
  Age: 8 Year
  Sex: Male
  Weight: 31.07 kg

DRUGS (3)
  1. GENOTROPIN [Suspect]
     Active Substance: SOMATROPIN
     Indication: Prader-Willi syndrome
     Dosage: 0.5MG ADMINISTERED ONCE DAILY TO THIGHS
     Dates: start: 2016
  2. GENOTROPIN [Suspect]
     Active Substance: SOMATROPIN
     Dosage: ALTERNATE 0.6MG AND 0.4MG
     Dates: end: 20200512
  3. GENOTROPIN [Suspect]
     Active Substance: SOMATROPIN
     Dosage: ALTERNATING 0.4 AND 0.5 MG

REACTIONS (4)
  - Poor quality device used [Unknown]
  - Device information output issue [Unknown]
  - Device use issue [Unknown]
  - Device leakage [Unknown]
